FAERS Safety Report 15785287 (Version 1)
Quarter: 2019Q1

REPORT INFORMATION
  Report Type: Spontaneous
  Country: US (occurrence: US)
  Receive Date: 20190103
  Receipt Date: 20190103
  Transmission Date: 20190417
  Serious: No
  Sender: FDA-Public Use
  Company Number: US-FERRINGPH-2018FE06338

PATIENT
  Sex: Female

DRUGS (1)
  1. LYSTEDA [Suspect]
     Active Substance: TRANEXAMIC ACID
     Indication: MENORRHAGIA
     Dosage: 2 PILLS, 3 TIMES DAILY
     Route: 065
     Dates: start: 2018, end: 2018

REACTIONS (3)
  - Abdominal discomfort [Unknown]
  - Thrombin time prolonged [Recovered/Resolved]
  - Intentional underdose [Recovered/Resolved]

NARRATIVE: CASE EVENT DATE: 2018
